FAERS Safety Report 8254837-1 (Version None)
Quarter: 2012Q2

REPORT INFORMATION
  Report Type: 
  Country: None (occurrence: None)
  Receive Date: 20120403
  Receipt Date: 20120330
  Transmission Date: 20120825
  Serious: Yes (Other)
  Sender: FDA-Public Use
  Company Number: PHHY2012CH028077

PATIENT

DRUGS (2)
  1. GLEEVEC [Suspect]
  2. MARCUMAR [Concomitant]

REACTIONS (1)
  - SUBDURAL HAEMATOMA [None]
